FAERS Safety Report 10252625 (Version 1)
Quarter: 2014Q2

REPORT INFORMATION
  Report Type: Spontaneous
  Country: BR (occurrence: BR)
  Receive Date: 20140623
  Receipt Date: 20140623
  Transmission Date: 20141212
  Serious: Yes (Other)
  Sender: FDA-Public Use
  Company Number: BR-PFIZER INC-2014165868

PATIENT
  Age: 69 Year
  Sex: Female
  Weight: 80 kg

DRUGS (10)
  1. LYRICA [Suspect]
     Indication: INTERVERTEBRAL DISC COMPRESSION
     Dosage: 1 TABLET (AS REPORTED)OF STRENGTH 75 MG DAILY, BUT IF SHE IS WITH MORE PAIN SHE TAKES 2 TABLETS DAIY
     Route: 048
     Dates: start: 201310, end: 20140612
  2. LYRICA [Suspect]
     Route: 048
  3. ADALAT OROS [Concomitant]
     Indication: HYPERTENSION
     Dosage: 1 TABLET, DAILY
     Dates: start: 1998
  4. ALCYTAM [Concomitant]
     Indication: ANTIDEPRESSANT THERAPY
     Dosage: 1 TABLET OF STRENGTH 20 MG, DAILY
     Dates: start: 1998
  5. ANCORON [Concomitant]
     Indication: ARRHYTHMIA
     Dosage: 1 TABLET OF STRENGTH 100 MG, DAILY
     Dates: start: 1998
  6. ETNA [Concomitant]
     Indication: INTERVERTEBRAL DISC COMPRESSION
     Dosage: 1 TABLET, 2X/DAY
     Dates: start: 20140604
  7. HIGROTON [Concomitant]
     Indication: DIURETIC THERAPY
     Dosage: 1 TABLET OF STRENGTH 12.5 MG, DAILY
     Dates: start: 1998
  8. LOSARTAN POTASSIUM [Concomitant]
     Indication: HYPERTENSION
     Dosage: 1 TABLET OF STRENGTH 50, DAILY
     Dates: start: 1998
  9. ROSUCOR [Concomitant]
     Indication: BLOOD CHOLESTEROL ABNORMAL
     Dosage: 1 TABLET, DAILY
     Dates: start: 1998
  10. SOMALGIN CARDIO [Concomitant]
     Indication: ANTICOAGULANT THERAPY
     Dosage: 1 TABLET, DAILY
     Dates: start: 1998

REACTIONS (2)
  - Glaucoma [Unknown]
  - Back pain [Not Recovered/Not Resolved]
